FAERS Safety Report 6736576-9 (Version None)
Quarter: 2010Q2

REPORT INFORMATION
  Report Type: 
  Country: None (occurrence: None)
  Receive Date: 20100519
  Receipt Date: 20100503
  Transmission Date: 20101027
  Serious: Yes (Hospitalization)
  Sender: FDA-Public Use
  Company Number: 1000013798

PATIENT
  Age: 1 Year
  Sex: Female

DRUGS (1)
  1. MILNACIPRAN (MILNACIPRAN HYDROCHLORIDE) (CAPSULES) [Suspect]
     Indication: ACCIDENTAL DRUG INTAKE BY CHILD
     Dosage: (25 MG, ONCE), ORAL
     Route: 048
     Dates: start: 20100428, end: 20100428

REACTIONS (1)
  - ACCIDENTAL DRUG INTAKE BY CHILD [None]
